FAERS Safety Report 5336402-9 (Version None)
Quarter: 2007Q2

REPORT INFORMATION
  Report Type: 
  Country: None (occurrence: None)
  Receive Date: 20070523
  Receipt Date: 20070508
  Transmission Date: 20071010
  Serious: Yes (Other)
  Sender: FDA-Public Use
  Company Number: 4638

PATIENT
  Age: 17 Year
  Sex: Female

DRUGS (1)
  1. AMNESTEEM (ISOTRETINOIN), 40 MG CAPSULES [Suspect]
     Indication: ACNE
     Dosage: 40MG, QOD - 80MG, QOD; PO
     Route: 048
     Dates: start: 20070110, end: 20070419

REACTIONS (2)
  - DRUG EXPOSURE DURING PREGNANCY [None]
  - PREGNANCY [None]
